FAERS Safety Report 13478579 (Version 4)
Quarter: 2018Q1

REPORT INFORMATION
  Report Type: Report from Study
  Country: US (occurrence: US)
  Receive Date: 20170424
  Receipt Date: 20180117
  Transmission Date: 20180508
  Serious: No
  Sender: FDA-Public Use
  Company Number: US-AMGEN-USASL2017031298

PATIENT
  Age: 61 Year
  Sex: Male

DRUGS (1)
  1. REPATHA [Suspect]
     Active Substance: EVOLOCUMAB
     Indication: ARTERIOSCLEROSIS
     Dosage: UNK, Q2WK
     Route: 065

REACTIONS (5)
  - Lethargy [Not Recovered/Not Resolved]
  - Asthenia [Not Recovered/Not Resolved]
  - Malaise [Not Recovered/Not Resolved]
  - Rash pruritic [Unknown]
  - Pain [Not Recovered/Not Resolved]

NARRATIVE: CASE EVENT DATE: 201702
